FAERS Safety Report 8473513-3 (Version None)
Quarter: 2012Q2

REPORT INFORMATION
  Report Type: 
  Country: None (occurrence: None)
  Receive Date: 20120625
  Receipt Date: 20120625
  Transmission Date: 20120825
  Serious: No
  Sender: FDA-Public Use
  Company Number: None

PATIENT
  Age: 55 Year
  Sex: Female
  Weight: 67.1324 kg

DRUGS (1)
  1. FOSAMAX [Suspect]
     Indication: OSTEOPENIA
     Dosage: 2000 FOR AROUND 6 MONTHS

REACTIONS (4)
  - MYELODYSPLASTIC SYNDROME [None]
  - RHEUMATOID ARTHRITIS [None]
  - NOSOCOMIAL INFECTION [None]
  - BACTERIAL INFECTION [None]
